FAERS Safety Report 23022265 (Version 2)
Quarter: 2023Q4

REPORT INFORMATION
  Report Type: Spontaneous
  Country: IT (occurrence: IT)
  Receive Date: 20231003
  Receipt Date: 20231010
  Transmission Date: 20240110
  Serious: Yes (Other)
  Sender: FDA-Public Use
  Company Number: None

PATIENT
  Age: 43 Year
  Sex: Female

DRUGS (2)
  1. DICLOFENAC SODIUM [Suspect]
     Active Substance: DICLOFENAC\DICLOFENAC SODIUM
     Indication: Back pain
     Dosage: 75 MG, (3UNITA DI MISURA: MILLILITRI FREQUENZA SOMMINISTRAZIONE: SECONDO NECESSITA VIA SOMMINISTRAZI
     Route: 030
     Dates: start: 20230917, end: 20230917
  2. OMEPRAZOLE [Concomitant]
     Active Substance: OMEPRAZOLE
     Indication: Gastritis prophylaxis
     Dosage: UNK (VIA SOMMINISTRAZIONE: ORALE)
     Route: 048

REACTIONS (2)
  - Malaise [Recovering/Resolving]
  - Palpitations [Recovering/Resolving]

NARRATIVE: CASE EVENT DATE: 20230917
